FAERS Safety Report 9283469 (Version 1)
Quarter: 2013Q2

REPORT INFORMATION
  Report Type: Spontaneous
  Country: US (occurrence: US)
  Receive Date: 20130510
  Receipt Date: 20130510
  Transmission Date: 20140414
  Serious: Yes (Hospitalization)
  Sender: FDA-Public Use
  Company Number: PHHY2013US044577

PATIENT
  Age: 37 Year
  Sex: Female

DRUGS (3)
  1. TOPOTECAN [Suspect]
     Indication: OVARIAN CANCER
     Dosage: 2.96 MG/M2, UNK
  2. TOPOTECAN [Suspect]
     Dosage: 3.45 MG/M2, UNK
  3. TOPOTECAN [Suspect]
     Dosage: 3.94 MG/M2, UNK

REACTIONS (18)
  - Rash papular [Recovering/Resolving]
  - Rash vesicular [Recovering/Resolving]
  - Dermatitis [Recovering/Resolving]
  - Conjunctivitis [Recovering/Resolving]
  - Herpes zoster [Recovering/Resolving]
  - Dry eye [Recovering/Resolving]
  - Vision blurred [Recovering/Resolving]
  - Diplopia [Recovering/Resolving]
  - Papule [Recovering/Resolving]
  - Rash pustular [Recovering/Resolving]
  - Macule [Recovering/Resolving]
  - Wound infection staphylococcal [Recovering/Resolving]
  - Pruritus [Recovering/Resolving]
  - Erythema [Recovering/Resolving]
  - Oedema [Recovering/Resolving]
  - Pain [Recovering/Resolving]
  - Acute febrile neutrophilic dermatosis [Recovering/Resolving]
  - Eye irritation [Recovering/Resolving]
